FAERS Safety Report 13530455 (Version 2)
Quarter: 2017Q2

REPORT INFORMATION
  Report Type: Spontaneous
  Country: US (occurrence: US)
  Receive Date: 20170509
  Receipt Date: 20170607
  Transmission Date: 20170830
  Serious: No
  Sender: FDA-Public Use
  Company Number: US-009507513-1704USA000128

PATIENT

DRUGS (1)
  1. ENTEREG [Suspect]
     Active Substance: ALVIMOPAN
     Dosage: 75 DOSES IN ALL PATIENTS, MEAN DOSES PER PATIENT WAS 6.5
     Route: 048

REACTIONS (1)
  - Product use issue [Unknown]
